FAERS Safety Report 19011011 (Version 2)
Quarter: 2021Q3

REPORT INFORMATION
  Report Type: Spontaneous
  Country: US (occurrence: US)
  Receive Date: 20210316
  Receipt Date: 20210728
  Transmission Date: 20211014
  Serious: Yes (Other)
  Sender: FDA-Public Use
  Company Number: US-DRREDDYS-USA/USA/21/0132881

PATIENT
  Sex: Male

DRUGS (8)
  1. DOXORUBICIN HYDROCHLORIDE LIPOSOME [Suspect]
     Active Substance: DOXORUBICIN HYDROCHLORIDE
     Indication: KAPOSI^S SARCOMA
  2. TACROLIMUS. [Concomitant]
     Active Substance: TACROLIMUS
     Indication: IMMUNOSUPPRESSANT DRUG THERAPY
     Dosage: DOSE WAS LOWERED
  3. PREDNISONE. [Concomitant]
     Active Substance: PREDNISONE
     Indication: IMMUNOSUPPRESSANT DRUG THERAPY
  4. PREDNISONE. [Concomitant]
     Active Substance: PREDNISONE
     Dosage: TAPER
  5. TACROLIMUS. [Concomitant]
     Active Substance: TACROLIMUS
  6. IMMUNOGLOBULINS [Concomitant]
     Indication: TRANSPLANT REJECTION
     Route: 042
  7. ANTI?THYMOCYTE GLOBULIN [Concomitant]
     Active Substance: THYMOCYTE IMMUNE GLOBULIN NOS
     Indication: TRANSPLANT REJECTION
  8. RITUXIMAB. [Concomitant]
     Active Substance: RITUXIMAB
     Indication: TRANSPLANT REJECTION

REACTIONS (1)
  - Febrile neutropenia [Unknown]
